FAERS Safety Report 11010065 (Version 1)
Quarter: 2015Q2

REPORT INFORMATION
  Report Type: Spontaneous
  Country: US (occurrence: US)
  Receive Date: 20150410
  Receipt Date: 20150410
  Transmission Date: 20150821
  Serious: Yes (Other)
  Sender: FDA-Public Use
  Company Number: US-PFIZER INC-2015122535

PATIENT
  Age: 76 Year
  Sex: Female
  Weight: 68 kg

DRUGS (1)
  1. CELEBREX [Suspect]
     Active Substance: CELECOXIB
     Indication: ARTHRITIS
     Dosage: 200 MG, 1 OR 2 A DAY AS NEEDED

REACTIONS (3)
  - Oesophageal disorder [Unknown]
  - Pharyngeal disorder [Not Recovered/Not Resolved]
  - Dry throat [Not Recovered/Not Resolved]
